FAERS Safety Report 6858948-4 (Version None)
Quarter: 2010Q3

REPORT INFORMATION
  Report Type: 
  Country: None (occurrence: None)
  Receive Date: 20100719
  Receipt Date: 20080219
  Transmission Date: 20110219
  Serious: No
  Sender: FDA-Public Use
  Company Number: US-PFIZER INC-2008017396

PATIENT
  Sex: Female
  Weight: 63.6 kg

DRUGS (2)
  1. CHANTIX [Suspect]
     Indication: SMOKING CESSATION THERAPY
     Dates: start: 20071117, end: 20080218
  2. PRAVASTATIN [Concomitant]

REACTIONS (3)
  - AGGRESSION [None]
  - DECREASED APPETITE [None]
  - INSOMNIA [None]
